FAERS Safety Report 11397928 (Version 29)
Quarter: 2018Q2

REPORT INFORMATION
  Report Type: Report from Study
  Country: CA (occurrence: CA)
  Receive Date: 20150819
  Receipt Date: 20180409
  Transmission Date: 20180711
  Serious: Yes (Life-Threatening, Hospitalization)
  Sender: FDA-Public Use
  Company Number: CA-ROCHE-1516362

PATIENT
  Age: 66 Year
  Sex: Female
  Weight: 80 kg

DRUGS (17)
  1. ACTEMRA [Suspect]
     Active Substance: TOCILIZUMAB
     Dosage: DATE OF MOST RECENT DOSE PRIOR TO SAE:  ON 02//DEC/2014
     Route: 042
     Dates: start: 20141230
  2. ACTEMRA [Suspect]
     Active Substance: TOCILIZUMAB
     Route: 042
     Dates: start: 20161013
  3. BRILINTA [Concomitant]
     Active Substance: TICAGRELOR
  4. FOLIC ACID. [Concomitant]
     Active Substance: FOLIC ACID
  5. ACTEMRA [Suspect]
     Active Substance: TOCILIZUMAB
     Route: 042
     Dates: start: 20160322
  6. PREDNISONE. [Concomitant]
     Active Substance: PREDNISONE
  7. RAMIPRIL. [Concomitant]
     Active Substance: RAMIPRIL
  8. FUROSEMIDE. [Concomitant]
     Active Substance: FUROSEMIDE
  9. ATORVASTATIN [Concomitant]
     Active Substance: ATORVASTATIN
  10. NAPROXEN. [Concomitant]
     Active Substance: NAPROXEN
  11. ACTEMRA [Suspect]
     Active Substance: TOCILIZUMAB
     Indication: RHEUMATOID ARTHRITIS
     Route: 042
     Dates: start: 20141104
  12. ACTEMRA [Suspect]
     Active Substance: TOCILIZUMAB
     Route: 042
     Dates: start: 20150721
  13. METHOTREXATE. [Concomitant]
     Active Substance: METHOTREXATE
  14. BISOPROLOL [Concomitant]
     Active Substance: BISOPROLOL
  15. ACTEMRA [Suspect]
     Active Substance: TOCILIZUMAB
     Route: 042
     Dates: start: 20160930
  16. BABY ASPIRIN [Concomitant]
     Active Substance: ASPIRIN
  17. ACTEMRA [Suspect]
     Active Substance: TOCILIZUMAB
     Route: 042
     Dates: start: 20160224

REACTIONS (24)
  - Cough [Recovered/Resolved]
  - Weight increased [Unknown]
  - Fall [Unknown]
  - Oral herpes [Recovering/Resolving]
  - Blood pressure fluctuation [Unknown]
  - Laceration [Unknown]
  - Bronchitis [Recovered/Resolved]
  - Heart rate decreased [Unknown]
  - Joint swelling [Not Recovered/Not Resolved]
  - Arthralgia [Not Recovered/Not Resolved]
  - Weight decreased [Not Recovered/Not Resolved]
  - Infusion related reaction [Unknown]
  - Dry skin [Unknown]
  - Epistaxis [Unknown]
  - Dyspnoea [Unknown]
  - Body temperature decreased [Unknown]
  - Laceration [Recovering/Resolving]
  - Contusion [Unknown]
  - Nasopharyngitis [Recovering/Resolving]
  - Fatigue [Unknown]
  - Contusion [Not Recovered/Not Resolved]
  - Peripheral coldness [Unknown]
  - Myocardial infarction [Unknown]
  - Pain [Unknown]

NARRATIVE: CASE EVENT DATE: 20141230
